FAERS Safety Report 10392036 (Version 4)
Quarter: 2014Q4

REPORT INFORMATION
  Report Type: Spontaneous
  Country: US (occurrence: US)
  Receive Date: 20140819
  Receipt Date: 20141003
  Transmission Date: 20150528
  Serious: Yes (Hospitalization)
  Sender: FDA-Public Use
  Company Number: US-UNITED THERAPEUTICS-UNT-2014-005654

PATIENT
  Age: 59 Year
  Sex: Female
  Weight: 98.87 kg

DRUGS (4)
  1. TRACLEER [Concomitant]
     Active Substance: BOSENTAN\BOSENTAN MONOHYDRATE
     Indication: PRODUCT USED FOR UNKNOWN INDICATION
  2. REMODULIN [Suspect]
     Active Substance: TREPROSTINIL
     Dosage: 0.006 ?G/KG, CONTINUING
     Route: 058
     Dates: start: 20140711
  3. REMODULIN [Suspect]
     Active Substance: TREPROSTINIL
     Indication: COR PULMONALE CHRONIC
     Dosage: .002 ?G/KG, CONTINUING
     Route: 058
     Dates: start: 20140711
  4. SILDENAFIL. [Concomitant]
     Active Substance: SILDENAFIL
     Indication: PRODUCT USED FOR UNKNOWN INDICATION

REACTIONS (12)
  - Bile duct stone [Unknown]
  - Malaise [Unknown]
  - Drug dose omission [Recovered/Resolved]
  - Respiratory failure [Not Recovered/Not Resolved]
  - Weight increased [Unknown]
  - Infusion site haemorrhage [Unknown]
  - Decreased appetite [Unknown]
  - Nephropathy [Not Recovered/Not Resolved]
  - Fluid overload [Unknown]
  - Medical device complication [Recovered/Resolved with Sequelae]
  - Nausea [Unknown]
  - Cholecystitis [Unknown]

NARRATIVE: CASE EVENT DATE: 201408
